FAERS Safety Report 16529261 (Version 2)
Quarter: 2019Q4

REPORT INFORMATION
  Report Type: Spontaneous
  Country: US (occurrence: US)
  Receive Date: 20190704
  Receipt Date: 20191002
  Transmission Date: 20200122
  Serious: No
  Sender: FDA-Public Use
  Company Number: US-GW PHARMA-201906USGW1943

PATIENT

DRUGS (8)
  1. EPIDIOLEX [Interacting]
     Active Substance: CANNABIDIOL
     Dosage: UNK
     Route: 048
     Dates: start: 201402, end: 20190204
  2. DEPAKOTE [Interacting]
     Active Substance: DIVALPROEX SODIUM
     Indication: SEIZURE
     Dosage: 375 MILLIGRAM, QD (250 MG AM AND 125 MG PM)
     Route: 065
     Dates: start: 201205, end: 20190514
  3. EPIDIOLEX [Suspect]
     Active Substance: CANNABIDIOL
     Indication: EPILEPSY
     Dosage: 350 MILLIGRAM, BID (18MG/KG)
     Route: 048
     Dates: start: 20190205
  4. DEPAKOTE [Interacting]
     Active Substance: DIVALPROEX SODIUM
     Dosage: 375 MILLIGRAM, QD  (DOSE  INCREASED TO 250 MG AM DUE TO SEIZURE AND 125 MG PM)
     Route: 065
     Dates: start: 20190615
  5. DEPAKOTE [Interacting]
     Active Substance: DIVALPROEX SODIUM
     Dosage: 250 MILLIGRAM, QD (LOWERED AM DOSE TO 125 MG DUE TO HAIR LOSS AND 125 MG PM)
     Route: 065
     Dates: start: 20190515, end: 20190614
  6. LAMICTAL [Concomitant]
     Active Substance: LAMOTRIGINE
     Indication: SEIZURE
     Dosage: 175 MILLIGRAM, QD (100MG AM, 75MG PM)
     Route: 065
     Dates: start: 200001, end: 20190514
  7. LAMICTAL [Concomitant]
     Active Substance: LAMOTRIGINE
     Dosage: 200 MILLIGRAM, QD (100 MG AM AND RAISED PM DOSE TO 100 MG)
     Route: 065
     Dates: start: 20190515
  8. ONFI [Concomitant]
     Active Substance: CLOBAZAM
     Indication: SEIZURE
     Dosage: 5 MILLIGRAM, BID
     Route: 065
     Dates: start: 200808

REACTIONS (3)
  - Seizure [Not Recovered/Not Resolved]
  - Alopecia [Recovering/Resolving]
  - Drug interaction [Unknown]

NARRATIVE: CASE EVENT DATE: 2019
